FAERS Safety Report 6757693-3 (Version None)
Quarter: 2010Q2

REPORT INFORMATION
  Report Type: 
  Country: None (occurrence: None)
  Receive Date: 20100604
  Receipt Date: 20100604
  Transmission Date: 20101027
  Serious: No
  Sender: FDA-Public Use
  Company Number: None

PATIENT
  Sex: Female
  Weight: 68.45 kg

DRUGS (3)
  1. CISPLATIN [Suspect]
     Dosage: 83 MG
  2. DOXORUBICIN HCL [Suspect]
     Dosage: 74 MG
  3. TAXOL [Suspect]
     Dosage: 149 MG

REACTIONS (5)
  - BLOOD CREATININE INCREASED [None]
  - HAEMOGLOBIN DECREASED [None]
  - NEUTROPHIL COUNT DECREASED [None]
  - PLATELET COUNT DECREASED [None]
  - WHITE BLOOD CELL COUNT DECREASED [None]
